FAERS Safety Report 17453707 (Version 4)
Quarter: 2020Q3

REPORT INFORMATION
  Report Type: Report from Study
  Country: US (occurrence: US)
  Receive Date: 20200224
  Receipt Date: 20200807
  Transmission Date: 20201102
  Serious: Yes (Death, Hospitalization)
  Sender: FDA-Public Use
  Company Number: US-JNJFOC-20200228181

PATIENT
  Age: 77 Year
  Sex: Male
  Weight: 77.18 kg

DRUGS (3)
  1. CABOMETYX [Concomitant]
     Active Substance: CABOZANTINIB S-MALATE
     Indication: RENAL CELL CARCINOMA
  2. STELARA [Suspect]
     Active Substance: USTEKINUMAB
     Indication: PRODUCT USED FOR UNKNOWN INDICATION
     Dosage: 90 MG/1ML
     Route: 058
  3. STELARA [Suspect]
     Active Substance: USTEKINUMAB

REACTIONS (2)
  - Renal cell carcinoma [Fatal]
  - Cerebral venous sinus thrombosis [Recovered/Resolved]

NARRATIVE: CASE EVENT DATE: 201912
